FAERS Safety Report 6023652-1 (Version None)
Quarter: 2008Q4

REPORT INFORMATION
  Report Type: 
  Country: None (occurrence: None)
  Receive Date: 20081222
  Receipt Date: 20080910
  Transmission Date: 20090506
  Serious: No
  Sender: FDA-Public Use
  Company Number: SPV1-2008-02021

PATIENT
  Age: 7 Year
  Sex: Male
  Weight: 36.3 kg

DRUGS (1)
  1. VYVANSE [Suspect]
     Indication: ATTENTION DEFICIT/HYPERACTIVITY DISORDER
     Dosage: 50 MG, 1X/DAY:QD, ORAL
     Route: 048
     Dates: start: 20080906, end: 20080907

REACTIONS (5)
  - ABDOMINAL PAIN UPPER [None]
  - AGITATION [None]
  - COLD SWEAT [None]
  - CRYING [None]
  - HEADACHE [None]
